FAERS Safety Report 8263579 (Version 3)
Quarter: 2012Q4

REPORT INFORMATION
  Report Type: 
  Country: US (occurrence: US)
  Receive Date: 20111127
  Receipt Date: 20120831
  Transmission Date: 20130627
  Serious: Yes (Hospitalization, Other)
  Sender: FDA-Public Use
  Company Number: US-ELI_LILLY_AND_COMPANY-US201102006437

PATIENT
  Age: 74 None
  Sex: Female

DRUGS (11)
  1. FORTEO [Suspect]
     Indication: OSTEOPOROSIS
     Dosage: 20 ug, qd
     Dates: start: 20110127
  2. FORTEO [Suspect]
     Dosage: 20 ug, qd
  3. FORTEO [Suspect]
     Dosage: 20 ug, qd
  4. FORTEO [Suspect]
     Dosage: 20 ug, qd
  5. FORTEO [Suspect]
     Dosage: 20 ug, qd
  6. FORTEO [Suspect]
     Dosage: 20 ug, qd
  7. FORTEO [Suspect]
     Dosage: 20 ug, qd
  8. FORTEO [Suspect]
     Dosage: 20 ug, qd
  9. FORTEO [Suspect]
     Dosage: 20 ug, qd
  10. DICYCLOMINE [Concomitant]
     Dosage: UNK, tid
  11. PRILOSEC [Concomitant]
     Indication: DYSPEPSIA

REACTIONS (37)
  - Hospitalisation [Unknown]
  - Loss of consciousness [Unknown]
  - Memory impairment [Not Recovered/Not Resolved]
  - Cataract [Not Recovered/Not Resolved]
  - Gastric disorder [Unknown]
  - Gait disturbance [Unknown]
  - Sinusitis [Unknown]
  - Abdominal distension [Unknown]
  - Abdominal discomfort [Not Recovered/Not Resolved]
  - Bowel movement irregularity [Unknown]
  - Hypersomnia [Not Recovered/Not Resolved]
  - Rash pruritic [Not Recovered/Not Resolved]
  - Urticaria [Unknown]
  - Thirst [Unknown]
  - Fatigue [Recovering/Resolving]
  - Aphagia [Unknown]
  - Photophobia [Unknown]
  - Feeling abnormal [Unknown]
  - Abdominal pain upper [Not Recovered/Not Resolved]
  - Malaise [Not Recovered/Not Resolved]
  - Fatigue [Not Recovered/Not Resolved]
  - Vagus nerve disorder [Unknown]
  - Nervousness [Unknown]
  - Rash [Unknown]
  - Arthralgia [Unknown]
  - Asthenia [Not Recovered/Not Resolved]
  - Pain [Recovering/Resolving]
  - Headache [Unknown]
  - Injection site bruising [Recovering/Resolving]
  - Diarrhoea [Recovering/Resolving]
  - Rash [Unknown]
  - Dizziness [Not Recovered/Not Resolved]
  - Nausea [Recovering/Resolving]
  - Nausea [Not Recovered/Not Resolved]
  - Incorrect storage of drug [Unknown]
  - Blood alkaline phosphatase increased [Unknown]
  - Visual acuity reduced [Unknown]
